FAERS Safety Report 8310074-3 (Version None)
Quarter: 2012Q2

REPORT INFORMATION
  Report Type: 
  Country: None (occurrence: None)
  Receive Date: 20120423
  Receipt Date: 20120406
  Transmission Date: 20120825
  Serious: Yes (Hospitalization)
  Sender: FDA-Public Use
  Company Number: DSA_56145_2012

PATIENT
  Sex: Male

DRUGS (7)
  1. LERCANIDIPINE [Suspect]
     Indication: HYPERTENSION
     Dosage: (DF ORAL)
     Route: 048
     Dates: end: 20111101
  2. COZAAR [Suspect]
     Indication: PRODUCT USED FOR UNKNOWN INDICATION
     Dosage: (DF ORAL)
     Route: 048
     Dates: end: 20120101
  3. PREVISCAN (PREVISCDAN-FLUINDIONE) 1 DF (NOT SPECIFIED) [Suspect]
     Indication: ARRHYTHMIA
     Dosage: (1 DF QD ORAL)
     Route: 048
     Dates: start: 20110601, end: 20120201
  4. DIGOXIN [Suspect]
     Indication: PRODUCT USED FOR UNKNOWN INDICATION
     Dosage: (DF ORAL)
     Route: 048
     Dates: end: 20120101
  5. DILTIAZEM HYDROCHLORIDE [Suspect]
     Indication: HYPERTENSION
     Dosage: (DF ORAL)
     Route: 048
     Dates: end: 20111101
  6. FLECAINIDE ACETATE [Suspect]
     Indication: PRODUCT USED FOR UNKNOWN INDICATION
     Dosage: (DF ORAL)
     Route: 048
     Dates: end: 20111101
  7. IRBESARTAN AND HYDROCHLOROTHIAZIDE [Suspect]
     Indication: HYPERTENSION
     Dosage: (DF ORAL)
     Route: 048
     Dates: end: 20120101

REACTIONS (4)
  - HEPATOMEGALY [None]
  - ECZEMA [None]
  - HEPATIC STEATOSIS [None]
  - SPLENOMEGALY [None]
